FAERS Safety Report 14349851 (Version 1)
Quarter: 2018Q1

REPORT INFORMATION
  Report Type: Spontaneous
  Country: US (occurrence: US)
  Receive Date: 20180104
  Receipt Date: 20180104
  Transmission Date: 20180509
  Serious: Yes (Hospitalization)
  Sender: FDA-Public Use
  Company Number: US-JNJFOC-20171236570

PATIENT
  Age: 74 Year
  Sex: Female

DRUGS (2)
  1. INVOKANA [Suspect]
     Active Substance: CANAGLIFLOZIN
     Indication: PRODUCT USED FOR UNKNOWN INDICATION
     Route: 048
     Dates: start: 20150513, end: 20170211
  2. INVOKAMET [Suspect]
     Active Substance: CANAGLIFLOZIN\METFORMIN HYDROCHLORIDE
     Indication: PRODUCT USED FOR UNKNOWN INDICATION
     Route: 048

REACTIONS (11)
  - Infection [Unknown]
  - Cellulitis [Unknown]
  - Toe amputation [Unknown]
  - Toe amputation [Unknown]
  - Osteomyelitis [Unknown]
  - Dry gangrene [Unknown]
  - Osteonecrosis [Unknown]
  - Leg amputation [Unknown]
  - Metatarsal excision [Unknown]
  - Foot amputation [Recovering/Resolving]
  - Skin ulcer [Unknown]

NARRATIVE: CASE EVENT DATE: 201512
